FAERS Safety Report 6569093-X (Version None)
Quarter: 2010Q1

REPORT INFORMATION
  Report Type: 
  Country: None (occurrence: None)
  Receive Date: 20100203
  Receipt Date: 20100129
  Transmission Date: 20100710
  Serious: Yes (Death)
  Sender: FDA-Public Use
  Company Number: UG-GILEAD-2010-0026815

PATIENT
  Age: 43 Year
  Sex: Male
  Weight: 56 kg

DRUGS (12)
  1. TRUVADA [Suspect]
     Indication: HIV INFECTION
     Route: 048
     Dates: start: 20090320, end: 20091221
  2. EFAVIRENZ [Concomitant]
     Indication: HIV INFECTION
     Route: 048
     Dates: start: 20090320, end: 20091221
  3. CEFTRIAXONE [Concomitant]
  4. VANCOMYCIN [Concomitant]
  5. DEXAMETHASONE [Concomitant]
  6. PHENYTOIN [Concomitant]
  7. VALPROATE SODIUM [Concomitant]
  8. RIFAMPICIN [Concomitant]
  9. ISONIAZID [Concomitant]
  10. PYRAZINAMIDE [Concomitant]
  11. ETHAMBUTOL HYDROCHLORIDE [Concomitant]
  12. STREPTOMYCIN [Concomitant]

REACTIONS (1)
  - DEATH [None]
